FAERS Safety Report 6215719-X (Version None)
Quarter: 2009Q2

REPORT INFORMATION
  Report Type: 
  Country: None (occurrence: None)
  Receive Date: 20090603
  Receipt Date: 20090603
  Transmission Date: 20091009
  Serious: Yes (Other)
  Sender: FDA-Public Use
  Company Number: None

PATIENT
  Age: 78 Year
  Sex: Female
  Weight: 83.0083 kg

DRUGS (1)
  1. TERAZOSIN HCL [Suspect]
     Indication: HYPERTENSION
     Dosage: 1 CAPSULE NIGHT -  BEFORE BEDTIME
     Dates: start: 20090428, end: 20090501

REACTIONS (8)
  - DRY MOUTH [None]
  - HEADACHE [None]
  - JOINT SWELLING [None]
  - NAUSEA [None]
  - OEDEMA PERIPHERAL [None]
  - PRURITUS [None]
  - TINNITUS [None]
  - VISUAL IMPAIRMENT [None]
